FAERS Safety Report 26061644 (Version 1)
Quarter: 2025Q4

REPORT INFORMATION
  Report Type: Spontaneous
  Country: US (occurrence: US)
  Receive Date: 20251118
  Receipt Date: 20251118
  Transmission Date: 20260118
  Serious: No
  Sender: TEVA
  Company Number: US-TEVA-VS-3393897

PATIENT
  Age: 5 Year
  Sex: Male

DRUGS (2)
  1. AMOXICILLIN [Suspect]
     Active Substance: AMOXICILLIN
     Indication: Product used for unknown indication
     Route: 065
  2. ALTUVIIIO [Suspect]
     Active Substance: EFANESOCTOCOG ALFA
     Indication: Product used for unknown indication
     Dosage: STRENGTH 260/1009 UNITS AT A DOSE 1200 (+/  10%) UNITS, AS NEEDED
     Route: 042

REACTIONS (4)
  - Cough [Unknown]
  - Nasopharyngitis [Unknown]
  - Rash [Unknown]
  - Secretion discharge [Unknown]
